FAERS Safety Report 22223758 (Version 1)
Quarter: 2023Q2

REPORT INFORMATION
  Report Type: Spontaneous
  Country: US (occurrence: None)
  Receive Date: 20230417
  Receipt Date: 20230417
  Transmission Date: 20230722
  Serious: Yes (unspecified)
  Sender: FDA-Public Use
  Company Number: None

PATIENT
  Age: 59 Year
  Sex: Female
  Weight: 117 kg

DRUGS (15)
  1. LIBTAYO [Suspect]
     Active Substance: CEMIPLIMAB-RWLC
     Indication: Basal cell carcinoma
     Dates: start: 20210830, end: 20220509
  2. ATORVASTATIN [Concomitant]
     Active Substance: ATORVASTATIN
  3. ZETIA [Concomitant]
     Active Substance: EZETIMIBE
  4. ACITRETIN [Concomitant]
     Active Substance: ACITRETIN
  5. TRAZODONE [Concomitant]
     Active Substance: TRAZODONE HYDROCHLORIDE
  6. NAPROSYN [Concomitant]
     Active Substance: NAPROXEN
  7. OMEPRAZOLE [Concomitant]
     Active Substance: OMEPRAZOLE
  8. FINASTERIDE [Concomitant]
     Active Substance: FINASTERIDE
  9. LEVOCETIRIZINE [Concomitant]
     Active Substance: LEVOCETIRIZINE
  10. VITAMIN D NOS [Concomitant]
     Active Substance: VITAMIN D NOS
  11. Stress B [Concomitant]
  12. BIOTIN [Concomitant]
     Active Substance: BIOTIN
  13. VITAMIN C [Concomitant]
     Active Substance: ASCORBIC ACID
  14. LIBTAYO [Suspect]
     Active Substance: CEMIPLIMAB-RWLC
     Indication: Squamous cell carcinoma
  15. LIBTAYO [Suspect]
     Active Substance: CEMIPLIMAB-RWLC
     Indication: Neoplasm recurrence

REACTIONS (2)
  - Chorioretinitis [None]
  - Therapy cessation [None]

NARRATIVE: CASE EVENT DATE: 20220510
